FAERS Safety Report 8167058 (Version 2)
Quarter: 2012Q4

REPORT INFORMATION
  Report Type: 
  Country: SI (occurrence: SI)
  Receive Date: 20111004
  Receipt Date: 20120928
  Transmission Date: 20130627
  Serious: Yes (Hospitalization)
  Sender: FDA-Public Use
  Company Number: SI-JNJFOC-20110912077

PATIENT
  Age: 67 Year
  Sex: Female

DRUGS (2)
  1. CAELYX (DOXORUBICIN HYDROCHLORIDE) [Suspect]
     Indication: OVARIAN CANCER
     Route: 042
  2. KYTRIL [Concomitant]
     Route: 065

REACTIONS (5)
  - Flushing [Unknown]
  - Chest pain [Unknown]
  - Back pain [Unknown]
  - Dyspnoea [Unknown]
  - Anxiety [Unknown]
